FAERS Safety Report 7034558-3 (Version None)
Quarter: 2010Q4

REPORT INFORMATION
  Report Type: 
  Country: None (occurrence: None)
  Receive Date: 20101008
  Receipt Date: 20101003
  Transmission Date: 20110411
  Serious: Yes (Life-Threatening, Hospitalization)
  Sender: FDA-Public Use
  Company Number: SE-NOVOPROD-315923

PATIENT
  Age: 66 Year
  Sex: Female

DRUGS (1)
  1. VAGIFEM [Suspect]
     Indication: PRODUCT USED FOR UNKNOWN INDICATION

REACTIONS (3)
  - BREAST CANCER METASTATIC [None]
  - MYOCARDIAL INFARCTION [None]
  - PRURITUS [None]
